FAERS Safety Report 9227635 (Version 1)
Quarter: 2013Q1

REPORT INFORMATION
  Report Type: Spontaneous
  Country: US (occurrence: None)
  Receive Date: 20121012
  Receipt Date: 20121012
  Transmission Date: 20140127
  Serious: Yes (Other)
  Sender: FDA-Public Use
  Company Number: 2012P1008855

PATIENT
  Age: 71 Year
  Sex: Female

DRUGS (7)
  1. CIPROFLOXACIN TABLETS, USP [Suspect]
     Indication: URINARY TRACT INFECTION
     Route: 048
     Dates: start: 2011
  2. CHANTIX [Suspect]
     Dates: start: 201112
  3. TYLENOL WITH CODEINE [Concomitant]
  4. PRILOSEC [Concomitant]
  5. IBUPROFEN [Concomitant]
  6. SYMBICORT [Concomitant]
  7. SPRIVIA [Concomitant]

REACTIONS (3)
  - Hallucination [None]
  - Dysuria [None]
  - Urine odour abnormal [None]
